FAERS Safety Report 18345555 (Version 2)
Quarter: 2020Q4

REPORT INFORMATION
  Report Type: Spontaneous
  Country: US (occurrence: US)
  Receive Date: 20201005
  Receipt Date: 20201013
  Transmission Date: 20210114
  Serious: Yes (Other)
  Sender: FDA-Public Use
  Company Number: US-ASTRAZENECA-2020SF27287

PATIENT
  Age: 19528 Day
  Sex: Male

DRUGS (48)
  1. FARXIGA [Suspect]
     Active Substance: DAPAGLIFLOZIN PROPANEDIOL
     Indication: TYPE 2 DIABETES MELLITUS
     Route: 048
     Dates: start: 20160409
  2. FARXIGA [Suspect]
     Active Substance: DAPAGLIFLOZIN PROPANEDIOL
     Indication: WEIGHT DECREASED
     Route: 048
     Dates: start: 20160502
  3. PROMETHAZINE [Concomitant]
     Active Substance: PROMETHAZINE HYDROCHLORIDE
  4. TYLENOL [Concomitant]
     Active Substance: ACETAMINOPHEN
  5. ZOSYN [Concomitant]
     Active Substance: PIPERACILLIN SODIUM\TAZOBACTAM SODIUM
  6. COLACE [Concomitant]
     Active Substance: DOCUSATE SODIUM
  7. OLMESARTAN [Concomitant]
     Active Substance: OLMESARTAN
  8. JANUVIA [Concomitant]
     Active Substance: SITAGLIPTIN PHOSPHATE
  9. FARXIGA [Suspect]
     Active Substance: DAPAGLIFLOZIN PROPANEDIOL
     Indication: TYPE 2 DIABETES MELLITUS
     Route: 048
     Dates: start: 20160307, end: 20170720
  10. ANECTINE [Concomitant]
     Active Substance: SUCCINYLCHOLINE CHLORIDE
  11. LIRAGLUTIDE [Concomitant]
     Active Substance: LIRAGLUTIDE
  12. NAPROXEN. [Concomitant]
     Active Substance: NAPROXEN
  13. TIZANIDINE. [Concomitant]
     Active Substance: TIZANIDINE
  14. XYLOCAINE [Concomitant]
     Active Substance: LIDOCAINE HYDROCHLORIDE
  15. NORMODYNE [Concomitant]
     Active Substance: LABETALOL HYDROCHLORIDE
  16. ZOFRAN [Concomitant]
     Active Substance: ONDANSETRON HYDROCHLORIDE
  17. VANCOCIN [Concomitant]
     Active Substance: VANCOMYCIN HYDROCHLORIDE
  18. PRAVASTATIN. [Concomitant]
     Active Substance: PRAVASTATIN
  19. DICLOFENAC [Concomitant]
     Active Substance: DICLOFENAC
  20. FARXIGA [Suspect]
     Active Substance: DAPAGLIFLOZIN PROPANEDIOL
     Indication: WEIGHT DECREASED
     Route: 048
     Dates: start: 20160409
  21. FARXIGA [Suspect]
     Active Substance: DAPAGLIFLOZIN PROPANEDIOL
     Indication: BLOOD PRESSURE DECREASED
     Route: 048
     Dates: start: 20160409
  22. IBUPROFEN. [Concomitant]
     Active Substance: IBUPROFEN
  23. FARXIGA [Suspect]
     Active Substance: DAPAGLIFLOZIN PROPANEDIOL
     Indication: BLOOD PRESSURE DECREASED
     Route: 048
     Dates: start: 20160307, end: 20170720
  24. ZEMURON [Concomitant]
     Active Substance: ROCURONIUM BROMIDE
  25. HYDROMORPHONE [Concomitant]
     Active Substance: HYDROMORPHONE
  26. DEXTROSE. [Concomitant]
     Active Substance: DEXTROSE
  27. ASPIRIN. [Concomitant]
     Active Substance: ASPIRIN
  28. FARXIGA [Suspect]
     Active Substance: DAPAGLIFLOZIN PROPANEDIOL
     Indication: WEIGHT DECREASED
     Route: 048
     Dates: start: 20160307, end: 20170720
  29. VERSED [Concomitant]
     Active Substance: MIDAZOLAM HYDROCHLORIDE
  30. GLUCAGON. [Concomitant]
     Active Substance: GLUCAGON
  31. NOVOLIN NOS [Concomitant]
     Active Substance: INSULIN HUMAN
  32. ENOXAPARIN [Concomitant]
     Active Substance: ENOXAPARIN
  33. MEPERIDINE [Concomitant]
     Active Substance: MEPERIDINE
  34. FARXIGA [Suspect]
     Active Substance: DAPAGLIFLOZIN PROPANEDIOL
     Indication: BLOOD PRESSURE DECREASED
     Route: 048
     Dates: start: 20160502
  35. DIPRIVAN [Concomitant]
     Active Substance: PROPOFOL
  36. SUBLIMAZE [Concomitant]
     Active Substance: FENTANYL CITRATE
  37. ROCURONIUM [Concomitant]
     Active Substance: ROCURONIUM BROMIDE
  38. BENICAR [Concomitant]
     Active Substance: OLMESARTAN MEDOXOMIL
  39. DOXYCYCLINE. [Concomitant]
     Active Substance: DOXYCYCLINE
  40. PREDNISONE. [Concomitant]
     Active Substance: PREDNISONE
  41. FARXIGA [Suspect]
     Active Substance: DAPAGLIFLOZIN PROPANEDIOL
     Indication: TYPE 2 DIABETES MELLITUS
     Route: 048
     Dates: start: 20160502
  42. LISINOPRIL. [Concomitant]
     Active Substance: LISINOPRIL
  43. LEVEMIR [Concomitant]
     Active Substance: INSULIN DETEMIR
  44. AMBIEN [Concomitant]
     Active Substance: ZOLPIDEM TARTRATE
  45. NORCO [Concomitant]
     Active Substance: ACETAMINOPHEN\HYDROCODONE BITARTRATE
  46. METFORMIN [Concomitant]
     Active Substance: METFORMIN HYDROCHLORIDE
  47. GLYBURIDE. [Concomitant]
     Active Substance: GLYBURIDE
  48. ONDANSETRON [Concomitant]
     Active Substance: ONDANSETRON

REACTIONS (5)
  - Necrotising soft tissue infection [Unknown]
  - Fournier^s gangrene [Unknown]
  - Scrotal swelling [Unknown]
  - Cellulitis of male external genital organ [Unknown]
  - Scrotal abscess [Unknown]

NARRATIVE: CASE EVENT DATE: 20170801
